FAERS Safety Report 23931205 (Version 1)
Quarter: 2024Q2

REPORT INFORMATION
  Report Type: Report from Study
  Country: US (occurrence: US)
  Receive Date: 20240603
  Receipt Date: 20240603
  Transmission Date: 20240716
  Serious: Yes (Other)
  Sender: FDA-Public Use
  Company Number: US-JNJFOC-20240577774

PATIENT
  Sex: Male

DRUGS (9)
  1. REMICADE [Suspect]
     Active Substance: INFLIXIMAB
     Indication: VEXAS syndrome
     Route: 041
  2. METHOTREXATE [Suspect]
     Active Substance: METHOTREXATE
  3. UPADACITINIB [Suspect]
     Active Substance: UPADACITINIB
  4. RUXOLITINIB [Suspect]
     Active Substance: RUXOLITINIB
  5. MYCOPHENOLIC ACID [Suspect]
     Active Substance: MYCOPHENOLIC ACID
  6. TOCILIZUMAB [Suspect]
     Active Substance: TOCILIZUMAB
  7. AZATHIOPRINE [Suspect]
     Active Substance: AZATHIOPRINE
  8. RITUXIMAB [Suspect]
     Active Substance: RITUXIMAB
  9. HYDROXYCHLOROQUINE [Suspect]
     Active Substance: HYDROXYCHLOROQUINE

REACTIONS (2)
  - Plasma cell myeloma [Unknown]
  - Product use in unapproved indication [Unknown]
